FAERS Safety Report 4546809-5 (Version None)
Quarter: 2005Q1

REPORT INFORMATION
  Report Type: 
  Country: None (occurrence: None)
  Receive Date: 20050105
  Receipt Date: 20041201
  Transmission Date: 20050727
  Serious: Yes (Life-Threatening)
  Sender: FDA-Public Use
  Company Number: 2004232952AU

PATIENT
  Age: 51 Year
  Sex: Female
  Weight: 95 kg

DRUGS (16)
  1. IDARUBICIN HYDROCHLORIDE POWDER, STERILE (IDARUBICIN HYDROCHLORIDE) [Suspect]
     Indication: ACUTE MYELOID LEUKAEMIA
     Dosage: 17 MG (QD X 3 DAYS, CYCLIC), INTRAVENOUS
     Route: 042
     Dates: start: 20040908
  2. CYTARABINE [Suspect]
     Indication: ACUTE MYELOID LEUKAEMIA
     Dosage: 5-7 GRAM (BID, DAYS 1, 3, 5, 7, CYCLIC), INTRAVENOUS
     Route: 042
     Dates: start: 20040908
  3. ETOPOSIDE [Suspect]
     Indication: ACUTE MYELOID LEUKAEMIA
     Dosage: 145 MG (QD X 7 DAYS,
     Dates: start: 20040908
  4. ITRACONAZOLE [Concomitant]
  5. ALLOPURINOL [Concomitant]
  6. NYSTATIN [Concomitant]
  7. ONDANSETRON HCL [Concomitant]
  8. DEXAMETHASONE [Concomitant]
  9. METOCLOPRAMIDE HYDROCHLORIDE (METOCLOPRAMIDE HYDROCLORIDE) [Concomitant]
  10. SODIUM BICARBONATE IN PLASTIC CONTAINER [Concomitant]
  11. POTASSIUM CHLORIDE [Concomitant]
  12. DEXAMETHASONE [Concomitant]
  13. AMILORIDE (AMILORIDE) [Concomitant]
  14. NORETHISTERONE ACETATE (NORETHISTERONE ACETATE) [Concomitant]
  15. CEFTRIAXONE [Concomitant]
  16. ERYTHROMYCIN [Concomitant]

REACTIONS (24)
  - BACTERIA URINE IDENTIFIED [None]
  - BLOOD CULTURE POSITIVE [None]
  - CEREBELLAR HAEMORRHAGE [None]
  - CONFUSIONAL STATE [None]
  - CONVULSION [None]
  - DIARRHOEA [None]
  - ENTEROBACTER INFECTION [None]
  - FLUID OVERLOAD [None]
  - HAEMODIALYSIS [None]
  - HYPOTENSION [None]
  - KLEBSIELLA INFECTION [None]
  - LEUKOSTASIS [None]
  - MOUTH HAEMORRHAGE [None]
  - MUCOSAL INFLAMMATION [None]
  - MYOPATHY [None]
  - NEUROPATHY PERIPHERAL [None]
  - NEUTROPENIA [None]
  - PNEUMONIA [None]
  - PULMONARY OEDEMA [None]
  - RENAL FAILURE ACUTE [None]
  - SEPSIS [None]
  - TACHYCARDIA [None]
  - TUMOUR LYSIS SYNDROME [None]
  - VOMITING [None]
